FAERS Safety Report 10035988 (Version 1)
Quarter: 2014Q1

REPORT INFORMATION
  Report Type: Spontaneous
  Country: US (occurrence: US)
  Receive Date: 20140325
  Receipt Date: 20140325
  Transmission Date: 20141002
  Serious: No
  Sender: FDA-Public Use
  Company Number: US-009507513-1403USA002132

PATIENT
  Age: 56 Year
  Sex: Male
  Weight: 74.83 kg

DRUGS (4)
  1. MIRALAX [Suspect]
     Indication: CONSTIPATION
     Dosage: 2 TSP, QD
     Route: 048
     Dates: start: 201309
  2. COZAAR [Concomitant]
     Indication: HYPERTENSION
     Dosage: UNK, UNKNOWN
  3. PROPRANOLOL HYDROCHLORIDE [Concomitant]
     Indication: HYPERTENSION
     Dosage: UNK, UNKNOWN
  4. MELOXICAM [Concomitant]
     Indication: TENDONITIS
     Dosage: UNK, UNKNOWN

REACTIONS (3)
  - Underdose [Unknown]
  - Incorrect drug administration duration [Unknown]
  - Product quality issue [Unknown]
